FAERS Safety Report 15341015 (Version 1)
Quarter: 2018Q3

REPORT INFORMATION
  Report Type: Spontaneous
  Country: US (occurrence: US)
  Receive Date: 20180831
  Receipt Date: 20180831
  Transmission Date: 20181010
  Serious: No
  Sender: FDA-Public Use
  Company Number: US-TEVA-2018-US-949366

PATIENT
  Sex: Female

DRUGS (1)
  1. COPAXONE [Suspect]
     Active Substance: GLATIRAMER ACETATE
     Dosage: FORM STRENGTH : UNKNOWN
     Route: 065

REACTIONS (6)
  - Arthropod sting [Unknown]
  - Injection site atrophy [Unknown]
  - Injection site haemorrhage [Unknown]
  - Thermal burn [Unknown]
  - Swelling [Unknown]
  - Pruritus [Unknown]
